FAERS Safety Report 7008710-7 (Version None)
Quarter: 2010Q3

REPORT INFORMATION
  Report Type: 
  Country: None (occurrence: None)
  Receive Date: 20100921
  Receipt Date: 20100907
  Transmission Date: 20110219
  Serious: Yes (Other)
  Sender: FDA-Public Use
  Company Number: A-CH2010-36572

PATIENT
  Age: 65 Year
  Sex: Male

DRUGS (2)
  1. MIGLUSTAT CAPSULE 100 MG EU (MIGLUSTAT) CAPSULE [Suspect]
     Indication: GAUCHER'S DISEASE
     Dosage: 100 MG, TID, ORAL
     Route: 048
     Dates: end: 20100616
  2. MIGLUSTAT CAPSULE 100 MG EU (MIGLUSTAT) CAPSULE [Suspect]
     Indication: GAUCHER'S DISEASE
     Dosage: 100 MG, TID, ORAL
     Route: 048
     Dates: start: 20100204

REACTIONS (5)
  - DECREASED APPETITE [None]
  - MYCOBACTERIAL INFECTION [None]
  - NIGHT SWEATS [None]
  - RESPIRATORY TRACT INFECTION FUNGAL [None]
  - WEIGHT DECREASED [None]
